FAERS Safety Report 15985066 (Version 3)
Quarter: 2019Q1

REPORT INFORMATION
  Report Type: Spontaneous
  Country: JP (occurrence: JP)
  Receive Date: 20190220
  Receipt Date: 20190228
  Transmission Date: 20190418
  Serious: Yes (Hospitalization)
  Sender: FDA-Public Use
  Company Number: JP-EISAI MEDICAL RESEARCH-EC-2019-052154

PATIENT
  Sex: Male

DRUGS (2)
  1. LENVIMA [Suspect]
     Active Substance: LENVATINIB
     Indication: HEPATOCELLULAR CARCINOMA
     Route: 048
     Dates: start: 20190207, end: 20190213
  2. LENVIMA [Suspect]
     Active Substance: LENVATINIB
     Route: 048
     Dates: start: 20190214, end: 20190220

REACTIONS (2)
  - Blood count abnormal [Unknown]
  - Hepatic encephalopathy [Recovered/Resolved]

NARRATIVE: CASE EVENT DATE: 201902
